FAERS Safety Report 14790103 (Version 5)
Quarter: 2019Q3

REPORT INFORMATION
  Report Type: Spontaneous
  Country: CZ (occurrence: CZ)
  Receive Date: 20180423
  Receipt Date: 20190927
  Transmission Date: 20191004
  Serious: Yes (Death, Other)
  Sender: FDA-Public Use
  Company Number: CZ-MYLANLABS-2018M1025868

PATIENT
  Sex: Female

DRUGS (7)
  1. IRINOTECAN [Suspect]
     Active Substance: IRINOTECAN
     Dosage: FOLFOX FOLFIRI, CYCLE
     Route: 065
     Dates: start: 201409
  2. FLUOROURACIL. [Suspect]
     Active Substance: FLUOROURACIL
     Indication: COLORECTAL CANCER
     Dosage: FOLFOX FOLFIRI, CYCLE
     Route: 065
     Dates: start: 201211
  3. BEVACIZUMAB. [Suspect]
     Active Substance: BEVACIZUMAB
     Indication: COLORECTAL CANCER
     Dosage: UNK UNK, CYCLE FOLFOX FOLFIRI
     Route: 065
     Dates: start: 20140623
  4. AFLIBERCEPT [Suspect]
     Active Substance: AFLIBERCEPT
     Indication: PRODUCT USED FOR UNKNOWN INDICATION
     Dosage: FOLFOX FOLFIRI
     Dates: start: 20140908, end: 20160111
  5. OXALIPLATIN. [Suspect]
     Active Substance: OXALIPLATIN
     Indication: COLORECTAL CANCER
     Dosage: FOLFOX FOLFIRI
     Route: 065
     Dates: start: 201211
  6. IRINOTECAN [Suspect]
     Active Substance: IRINOTECAN
     Indication: COLORECTAL CANCER
     Dosage: FOLFOX FOLFIRI, CYCLE
     Route: 065
     Dates: start: 20140908
  7. FOLINIC ACID [Suspect]
     Active Substance: LEUCOVORIN
     Indication: COLORECTAL CANCER
     Dosage: FOLFOX FOLFIRI, CYCLE
     Route: 065
     Dates: start: 201211

REACTIONS (6)
  - Off label use [Unknown]
  - Diarrhoea [Unknown]
  - Hypertension [Unknown]
  - Thrombocytopenia [Unknown]
  - Disease progression [Fatal]
  - Fatigue [Unknown]

NARRATIVE: CASE EVENT DATE: 201406
